FAERS Safety Report 18215946 (Version 3)
Quarter: 2020Q4

REPORT INFORMATION
  Report Type: Spontaneous
  Country: BR (occurrence: BR)
  Receive Date: 20200831
  Receipt Date: 20201009
  Transmission Date: 20210113
  Serious: Yes (Hospitalization, Disabling, Other)
  Sender: FDA-Public Use
  Company Number: BR-AMGEN-BRASP2020141186

PATIENT
  Age: 58 Year
  Sex: Female

DRUGS (1)
  1. ENBREL [Suspect]
     Active Substance: ETANERCEPT
     Indication: ARTHRITIS
     Dosage: UNK
     Route: 065

REACTIONS (15)
  - Diabetes mellitus [Unknown]
  - Off label use [Unknown]
  - Product use in unapproved indication [Unknown]
  - Mobility decreased [Unknown]
  - Coagulopathy [Unknown]
  - Pain [Unknown]
  - Thrombosis [Unknown]
  - Back pain [Unknown]
  - Phantom limb syndrome [Unknown]
  - Localised infection [Unknown]
  - Pain in extremity [Unknown]
  - Osteoarthritis [Unknown]
  - Fall [Unknown]
  - Intentional dose omission [Unknown]
  - Fatigue [Unknown]

NARRATIVE: CASE EVENT DATE: 20200828
